FAERS Safety Report 6731774-2 (Version None)
Quarter: 2010Q2

REPORT INFORMATION
  Report Type: 
  Country: None (occurrence: None)
  Receive Date: 20100519
  Receipt Date: 20100510
  Transmission Date: 20101027
  Serious: Yes (Other)
  Sender: FDA-Public Use
  Company Number: JP-PFIZER INC-2010060149

PATIENT

DRUGS (1)
  1. ZITHROMAC SR [Suspect]
     Indication: ANTIBIOTIC PROPHYLAXIS
     Dosage: 2G/DAY
     Route: 048

REACTIONS (1)
  - CHEST DISCOMFORT [None]
